FAERS Safety Report 10385312 (Version 1)
Quarter: 2014Q3

REPORT INFORMATION
  Report Type: Spontaneous
  Country: FI (occurrence: None)
  Receive Date: 20140806
  Receipt Date: 20140806
  Transmission Date: 20150326
  Serious: No
  Sender: FDA-Public Use
  Company Number: 228392

PATIENT
  Age: 58 Year
  Sex: Female

DRUGS (1)
  1. PICATO [Suspect]
     Active Substance: INGENOL MEBUTATE
     Indication: ACTINIC KERATOSIS
     Dates: start: 20140220, end: 20140223

REACTIONS (7)
  - Nasopharyngitis [None]
  - Application site swelling [None]
  - Skin reaction [None]
  - Asthenia [None]
  - Application site pustules [None]
  - Eye swelling [None]
  - Application site exfoliation [None]
